FAERS Safety Report 8970864 (Version 1)
Quarter: 2012Q4

REPORT INFORMATION
  Report Type: 
  Country: FR (occurrence: FR)
  Receive Date: 20121218
  Receipt Date: 20121218
  Transmission Date: 20130627
  Serious: Yes (Hospitalization)
  Sender: FDA-Public Use
  Company Number: FR-SANOFI-AVENTIS-2012SA091125

PATIENT
  Age: 4 Day
  Sex: Female

DRUGS (1)
  1. CEFOTAXIME [Suspect]
     Indication: DRUG USE FOR UNKNOWN INDICATION
     Route: 064
     Dates: start: 20100125, end: 20100203

REACTIONS (3)
  - Klebsiella infection [Unknown]
  - Foetal exposure during pregnancy [Unknown]
  - Pyrexia [Unknown]
